FAERS Safety Report 10753581 (Version 1)
Quarter: 2015Q1

REPORT INFORMATION
  Report Type: Spontaneous
  Country: IT (occurrence: None)
  Receive Date: 20150129
  Receipt Date: 20150129
  Transmission Date: 20150721
  Serious: Yes (Hospitalization)
  Sender: FDA-Public Use
  Company Number: 2015HINLIT0062

PATIENT
  Age: 59 Year
  Sex: Female

DRUGS (6)
  1. VITAMIN D [Concomitant]
     Active Substance: CHOLECALCIFEROL
  2. GLYCYRRHIZA [Suspect]
     Active Substance: LICORICE
     Indication: LAXATIVE SUPPORTIVE CARE
  3. CALCIUM GLUCONATE. [Concomitant]
     Active Substance: CALCIUM GLUCONATE
  4. POTASSIUM SOLUTION [Concomitant]
  5. LEVOTHYROXINE [Concomitant]
     Active Substance: LEVOTHYROXINE
  6. SIMVASTATIN (SIMVASTATIN) UNKNOWN, UNKNOWN [Suspect]
     Active Substance: SIMVASTATIN
     Indication: HYPERCHOLESTEROLAEMIA

REACTIONS (10)
  - Hyperaldosteronism [None]
  - Hypernatraemia [None]
  - Arthropathy [None]
  - Hypocalcaemia [None]
  - Tetany [None]
  - Myopathy [None]
  - Electrocardiogram QT prolonged [None]
  - Blood thyroid stimulating hormone increased [None]
  - Hypokalaemia [None]
  - Metabolic alkalosis [None]
